FAERS Safety Report 5300930-2 (Version None)
Quarter: 2007Q2

REPORT INFORMATION
  Report Type: 
  Country: None (occurrence: None)
  Receive Date: 20070418
  Receipt Date: 20070406
  Transmission Date: 20071010
  Serious: Yes (Hospitalization)
  Sender: FDA-Public Use
  Company Number: JP-ROCHE-492474

PATIENT
  Age: 40 Year
  Sex: Female
  Weight: 47 kg

DRUGS (11)
  1. TAMIFLU [Suspect]
     Route: 048
     Dates: start: 20070307, end: 20070311
  2. GASTER D [Concomitant]
     Route: 048
  3. LASIX [Concomitant]
     Route: 048
  4. BLOPRESS [Concomitant]
     Route: 048
  5. PREDONINE [Concomitant]
     Route: 048
  6. URSO [Concomitant]
     Route: 048
  7. ALDACTONE [Concomitant]
     Route: 048
  8. RISEDRONATE SODIUM [Concomitant]
     Dosage: DRUG: 'BENET' - SODIUM RISEDRONATE HYDRATE
     Route: 048
  9. CALCIUM LACTATE [Concomitant]
     Dosage: DRUG: UNKNOWN DRUG DOSE FORM: FINE GRANULE
     Route: 048
  10. ALFAROL [Concomitant]
     Route: 048
  11. LIPITOR [Concomitant]
     Route: 048

REACTIONS (1)
  - GRANULOCYTOPENIA [None]
